FAERS Safety Report 24991477 (Version 3)
Quarter: 2025Q2

REPORT INFORMATION
  Report Type: Report from Study
  Country: AU (occurrence: AU)
  Receive Date: 20250220
  Receipt Date: 20250409
  Transmission Date: 20250717
  Serious: Yes (Other)
  Sender: SYNDAX
  Company Number: AU-SYNDAX PHARMACEUTICALS, INC.-2025AU000043

PATIENT
  Age: 14 Year
  Sex: Female
  Weight: 56.8 kg

DRUGS (5)
  1. REVUMENIB SESQUIFUMARATE [Suspect]
     Active Substance: REVUMENIB SESQUIFUMARATE
     Indication: B precursor type acute leukaemia
     Dosage: 270 MILLIGRAM, EVERY 12 HOURS (Q12H)
     Route: 048
     Dates: start: 20241212, end: 20250111
  2. REVUMENIB SESQUIFUMARATE [Suspect]
     Active Substance: REVUMENIB SESQUIFUMARATE
     Dosage: 160 MILLIGRAM, Q12H
     Route: 048
     Dates: start: 20250123, end: 20250311
  3. VALACYCLOVIR                       /01269701/ [Concomitant]
     Indication: Prophylaxis
     Route: 065
  4. BACTRIM [Concomitant]
     Active Substance: SULFAMETHOXAZOLE\TRIMETHOPRIM
     Indication: Prophylaxis
     Route: 065
  5. FLUCONAZOLE [Concomitant]
     Active Substance: FLUCONAZOLE
     Indication: Prophylaxis
     Route: 065

REACTIONS (2)
  - Neutropenia [Recovered/Resolved]
  - Thrombocytopenia [Recovered/Resolved]

NARRATIVE: CASE EVENT DATE: 20250111
